FAERS Safety Report 5971113-8 (Version None)
Quarter: 2008Q4

REPORT INFORMATION
  Report Type: 
  Country: None (occurrence: None)
  Receive Date: 20081128
  Receipt Date: 20081117
  Transmission Date: 20090506
  Serious: Yes (Other)
  Sender: FDA-Public Use
  Company Number: ES-ROCHE-597462

PATIENT
  Age: 30 Year
  Sex: Male

DRUGS (2)
  1. PEGASYS [Suspect]
     Dosage: DOSAGE FORM : VIALS.
     Route: 058
     Dates: start: 20080905, end: 20080905
  2. RIBAVIRIN [Concomitant]
     Route: 048
     Dates: start: 20080901, end: 20080901

REACTIONS (1)
  - SYNCOPE [None]
